FAERS Safety Report 17545909 (Version 7)
Quarter: 2025Q2

REPORT INFORMATION
  Report Type: Spontaneous
  Country: US (occurrence: US)
  Receive Date: 20200316
  Receipt Date: 20250403
  Transmission Date: 20250716
  Serious: No
  Sender: PFIZER
  Company Number: US-PFIZER INC-2020111673

PATIENT
  Age: 51 Year
  Sex: Female

DRUGS (14)
  1. XELJANZ XR [Suspect]
     Active Substance: TOFACITINIB CITRATE
     Dosage: 11 MG, 1X/DAY
     Route: 048
  2. LOSARTAN [Concomitant]
     Active Substance: LOSARTAN
     Indication: Blood pressure abnormal
  3. SYNTHROID [Concomitant]
     Active Substance: LEVOTHYROXINE SODIUM
  4. NABUMETONE [Concomitant]
     Active Substance: NABUMETONE
  5. PREDNISONE [Concomitant]
     Active Substance: PREDNISONE
  6. PLAQUENIL [Concomitant]
     Active Substance: HYDROXYCHLOROQUINE SULFATE
  7. VITAMIN D3 [Concomitant]
     Active Substance: CHOLECALCIFEROL
  8. OMEPRAZOLE [Concomitant]
     Active Substance: OMEPRAZOLE
  9. MONTELUKAST [Concomitant]
     Active Substance: MONTELUKAST
  10. TOPIRAMATE [Concomitant]
     Active Substance: TOPIRAMATE
  11. PHENTERMINE [Concomitant]
     Active Substance: PHENTERMINE
  12. DULOXETINE [Concomitant]
     Active Substance: DULOXETINE
  13. VITAMIN B12 [Concomitant]
     Active Substance: CYANOCOBALAMIN
  14. TIZANIDINE HYDROCHLORIDE [Concomitant]
     Active Substance: TIZANIDINE HYDROCHLORIDE

REACTIONS (3)
  - Cough [Unknown]
  - Pain [Unknown]
  - Illness [Unknown]
